FAERS Safety Report 11016716 (Version 2)
Quarter: 2015Q2

REPORT INFORMATION
  Report Type: Spontaneous
  Country: US (occurrence: US)
  Receive Date: 20150412
  Receipt Date: 20150525
  Transmission Date: 20150821
  Serious: No
  Sender: FDA-Public Use
  Company Number: US-JNJFOC-20150213319

PATIENT
  Sex: Female
  Weight: 65.77 kg

DRUGS (2)
  1. ORTHO EVRA [Suspect]
     Active Substance: ETHINYL ESTRADIOL\NORELGESTROMIN
     Indication: MENORRHAGIA
     Route: 062
     Dates: start: 2013, end: 201411
  2. ORTHO EVRA [Suspect]
     Active Substance: ETHINYL ESTRADIOL\NORELGESTROMIN
     Indication: MENORRHAGIA
     Route: 062
     Dates: start: 201411

REACTIONS (9)
  - Product use issue [Not Recovered/Not Resolved]
  - Retching [Recovered/Resolved]
  - Pollakiuria [Recovered/Resolved]
  - Drug prescribing error [Unknown]
  - Drug dose omission [Recovered/Resolved]
  - Pregnancy test [Unknown]
  - Dyspepsia [Not Recovered/Not Resolved]
  - Frequent bowel movements [Not Recovered/Not Resolved]
  - Nausea [Recovered/Resolved]

NARRATIVE: CASE EVENT DATE: 2015
